FAERS Safety Report 6357319-7 (Version None)
Quarter: 2009Q3

REPORT INFORMATION
  Report Type: 
  Country: None (occurrence: None)
  Receive Date: 20090916
  Receipt Date: 20080401
  Transmission Date: 20100115
  Serious: Yes (Hospitalization, Other)
  Sender: FDA-Public Use
  Company Number: US-ASTRAZENECA-2007UW01963

PATIENT
  Age: 20850 Day
  Sex: Female
  Weight: 87.1 kg

DRUGS (60)
  1. SEROQUEL [Suspect]
     Indication: SLEEP DISORDER
     Dosage: 25 MG TO 100 MG
     Route: 048
     Dates: start: 20031009, end: 20060320
  2. SEROQUEL [Suspect]
     Indication: INSOMNIA
     Dosage: 25 MG TO 100 MG
     Route: 048
     Dates: start: 20031009, end: 20060320
  3. SEROQUEL [Suspect]
     Route: 048
     Dates: start: 20031204
  4. SEROQUEL [Suspect]
     Route: 048
     Dates: start: 20031204
  5. ZOLOFT [Concomitant]
     Dosage: 50 TO 200 MG
     Route: 048
     Dates: start: 20031204
  6. NEURONTIN [Concomitant]
     Indication: CONVULSION
     Dates: start: 20030328
  7. NEURONTIN [Concomitant]
     Indication: HEADACHE
     Dates: start: 20030328
  8. PYRIDOSTIGM [Concomitant]
  9. POTASSIUM CHLORIDE [Concomitant]
     Dosage: 10 TO 20 MEQ, EVERY WEEK, DAILY
     Dates: start: 20030328
  10. PROCHLORPERAZINE [Concomitant]
  11. CELEBREX [Concomitant]
  12. SYNTHROID [Concomitant]
     Indication: HYPOTHYROIDISM
     Route: 048
     Dates: start: 20030328
  13. MIRTAZAPINE [Concomitant]
  14. PREDNISOLONE [Concomitant]
     Indication: CHRONIC OBSTRUCTIVE PULMONARY DISEASE
     Dates: start: 20030708
  15. LEVAQUIN [Concomitant]
  16. BIAXIN [Concomitant]
  17. XOPENEX [Concomitant]
     Indication: CHRONIC OBSTRUCTIVE PULMONARY DISEASE
     Dosage: EVERY EIGHT HOURS AS PER REQUIRED
  18. METFORMIN HCL [Concomitant]
  19. NICOTROL [Concomitant]
  20. LORATADINE [Concomitant]
  21. PLAVIX [Concomitant]
  22. MOBIC [Concomitant]
  23. LASIX [Concomitant]
     Indication: CARDIAC FAILURE CONGESTIVE
     Dosage: 20 TO 40 MG
     Route: 048
     Dates: start: 20030328
  24. COMBIVENT [Concomitant]
     Indication: DYSPNOEA
     Dosage: TWO PUFFS FOUR TIMES A DAY
     Dates: start: 20030708
  25. IBUPROFEN [Concomitant]
     Dosage: 800-2400 MG
     Route: 048
     Dates: start: 20030630
  26. SULFASALAZIN [Concomitant]
  27. APAP W/ CODEINE [Concomitant]
  28. MEPERIDINE HCL [Concomitant]
  29. MECLIZINE [Concomitant]
  30. CYMBALTA [Concomitant]
  31. NEXIUM [Concomitant]
     Route: 048
     Dates: start: 20030328
  32. URSODIOL [Concomitant]
  33. KETEK [Concomitant]
  34. METHYLPRED [Concomitant]
  35. DUONEB [Concomitant]
  36. ZETIA [Concomitant]
  37. LEVOTHYROXINE SODIUM [Concomitant]
  38. HUMALOG [Concomitant]
  39. NYSTATIN [Concomitant]
  40. FEXOFENADINE [Concomitant]
  41. AMITRIPTYLINE HCL [Concomitant]
  42. CRESTOR [Concomitant]
  43. SERTRALINE HCL [Concomitant]
  44. GABAPENTIN [Concomitant]
  45. CHANTIX [Concomitant]
  46. DEPAKOTE [Concomitant]
     Indication: CONVULSION
     Dosage: 500 MG TWO, TWO TIMES A DAY
     Route: 048
     Dates: start: 20030328
  47. PHENOBARBITAL [Concomitant]
     Indication: CONVULSION
     Route: 048
     Dates: start: 20030328
  48. ZOCOR [Concomitant]
     Indication: HYPERLIPIDAEMIA
     Dates: start: 20030328
  49. TIAZAC [Concomitant]
     Indication: HYPERTENSION
     Route: 048
     Dates: start: 20030328
  50. REGLAN [Concomitant]
     Dates: start: 20030328
  51. LOPERAMIDE [Concomitant]
     Indication: DIARRHOEA
     Dates: start: 20030708
  52. ASPIRIN [Concomitant]
     Dates: start: 20030328
  53. MYSOLINE [Concomitant]
     Route: 048
     Dates: start: 20031204
  54. COMPAZINE [Concomitant]
     Dosage: 25 MG TWO TIMES A DAY AS PER REQUIRED
     Dates: start: 20030708
  55. ZYRTEC [Concomitant]
     Dates: start: 20031204
  56. ATIVAN [Concomitant]
     Indication: CONVULSION
     Dosage: 1 MG AS PER REQUIRED
     Dates: start: 20030708
  57. FAMOTIDINE [Concomitant]
     Indication: GASTROOESOPHAGEAL REFLUX DISEASE
     Dates: start: 20030708
  58. LEXAPRO [Concomitant]
     Indication: DEPRESSION
     Dates: start: 20030708
  59. MESTINON [Concomitant]
     Indication: MYASTHENIA GRAVIS
     Dosage: 60 MG TO 180 MG
     Dates: start: 20030323
  60. ACTIGALL [Concomitant]
     Route: 048
     Dates: start: 20050711

REACTIONS (8)
  - BLOOD CHOLESTEROL INCREASED [None]
  - CHOLECYSTITIS CHRONIC [None]
  - DIABETIC NEUROPATHY [None]
  - GALLBLADDER OPERATION [None]
  - LEUKOPLAKIA [None]
  - SENSATION OF FOREIGN BODY [None]
  - TYPE 2 DIABETES MELLITUS [None]
  - VOCAL CORD POLYP [None]
